FAERS Safety Report 10262759 (Version 2)
Quarter: 2014Q2

REPORT INFORMATION
  Report Type: Spontaneous
  Country: US (occurrence: US)
  Receive Date: 20140626
  Receipt Date: 20140626
  Transmission Date: 20141212
  Serious: No
  Sender: FDA-Public Use
  Company Number: US-MYLANLABS-2013S1014662

PATIENT
  Age: 26 Year
  Sex: Male
  Weight: 92.5 kg

DRUGS (11)
  1. CLOZAPINE TABLETS [Suspect]
     Route: 048
     Dates: start: 20130626, end: 20130626
  2. CLOZAPINE TABLETS [Suspect]
     Route: 048
     Dates: start: 20130627, end: 20130627
  3. CLOZAPINE TABLETS [Suspect]
     Route: 048
     Dates: start: 20130628, end: 20130628
  4. CLOZAPINE TABLETS [Suspect]
     Route: 048
     Dates: start: 20130629, end: 20130629
  5. CLOZAPINE TABLETS [Suspect]
     Route: 048
     Dates: start: 20130630
  6. ANAFRANIL [Concomitant]
  7. CLONAZEPAM [Concomitant]
  8. METFORMIN [Concomitant]
  9. PEPCID [Concomitant]
  10. ATIVAN [Concomitant]
  11. LORATADINE [Concomitant]

REACTIONS (2)
  - Medication error [Recovered/Resolved]
  - No adverse event [Recovered/Resolved]
